FAERS Safety Report 7701973-1 (Version None)
Quarter: 2011Q3

REPORT INFORMATION
  Report Type: 
  Country: None (occurrence: None)
  Receive Date: 20110822
  Receipt Date: 20110816
  Transmission Date: 20111222
  Serious: Yes (Disabling)
  Sender: FDA-Public Use
  Company Number: PHHO2011KR13512

PATIENT
  Sex: Male
  Weight: 64.85 kg

DRUGS (2)
  1. NO TREATMENT RECEIVED [Suspect]
     Indication: OSTEONECROSIS
     Dosage: NO TREATMENT
  2. CAL-D-VITA [Suspect]
     Indication: OSTEONECROSIS
     Dosage: 300 MG, UNK
     Route: 048
     Dates: start: 20100125, end: 20110714

REACTIONS (2)
  - DISEASE PROGRESSION [None]
  - OSTEONECROSIS [None]
